FAERS Safety Report 5910698-4 (Version None)
Quarter: 2008Q4

REPORT INFORMATION
  Report Type: 
  Country: None (occurrence: None)
  Receive Date: 20081006
  Receipt Date: 20081006
  Transmission Date: 20090506
  Serious: Yes (Hospitalization, Other)
  Sender: FDA-Public Use
  Company Number: None

PATIENT
  Age: 29 Year
  Sex: Female
  Weight: 73.4827 kg

DRUGS (1)
  1. ZOLPIDEM [Suspect]
     Indication: SLEEP DISORDER
     Dosage: 1 AS NEEDED PO
     Route: 048
     Dates: start: 20080812, end: 20080828

REACTIONS (5)
  - ANXIETY [None]
  - BIPOLAR I DISORDER [None]
  - CONDITION AGGRAVATED [None]
  - MANIA [None]
  - SPEECH DISORDER [None]
